FAERS Safety Report 14039047 (Version 1)
Quarter: 2017Q4

REPORT INFORMATION
  Report Type: Spontaneous
  Country: US (occurrence: US)
  Receive Date: 20171004
  Receipt Date: 20171004
  Transmission Date: 20180321
  Serious: No
  Sender: FDA-Public Use
  Company Number: US-INDIVIOR LIMITED-INDV-099708-2017

PATIENT
  Sex: Male

DRUGS (1)
  1. SUBOXONE [Suspect]
     Active Substance: BUPRENORPHINE HYDROCHLORIDE\NALOXONE HYDROCHLORIDE
     Indication: DRUG USE DISORDER
     Dosage: 12MG TWICE DAILY
     Route: 060
     Dates: start: 201702, end: 20170308

REACTIONS (2)
  - Product use issue [Recovered/Resolved]
  - Therapy cessation [Recovered/Resolved]

NARRATIVE: CASE EVENT DATE: 201702
